FAERS Safety Report 4772774-1 (Version None)
Quarter: 2005Q3

REPORT INFORMATION
  Report Type: 
  Country: None (occurrence: None)
  Receive Date: 20050919
  Receipt Date: 20050916
  Transmission Date: 20060218
  Serious: Yes (Other)
  Sender: FDA-Public Use
  Company Number: US-GLAXOSMITHKLINE-A0574520A

PATIENT
  Age: 22 Year
  Sex: Male

DRUGS (3)
  1. LAMICTAL [Suspect]
     Indication: DEPRESSION
     Route: 048
     Dates: start: 20031101
  2. ADDERALL 10 [Concomitant]
  3. RISPERDAL [Concomitant]

REACTIONS (3)
  - HEPATIC ENZYME INCREASED [None]
  - SPLENOMEGALY [None]
  - WEIGHT INCREASED [None]
